FAERS Safety Report 14200928 (Version 1)
Quarter: 2017Q4

REPORT INFORMATION
  Report Type: Spontaneous
  Country: US (occurrence: US)
  Receive Date: 20171117
  Receipt Date: 20171117
  Transmission Date: 20180321
  Serious: Yes (Other)
  Sender: FDA-Public Use
  Company Number: US-NOVOPROD-555914

PATIENT
  Age: 80 Year
  Sex: Male
  Weight: 186.8 kg

DRUGS (5)
  1. NOVOLOG [Suspect]
     Active Substance: INSULIN ASPART
     Dosage: 20 U, SINGLE
     Route: 058
     Dates: start: 20170518, end: 20170518
  2. NOVOLOG [Suspect]
     Active Substance: INSULIN ASPART
     Dosage: 36 U, QD
     Route: 058
     Dates: start: 2017
  3. LANTUS [Concomitant]
     Active Substance: INSULIN GLARGINE
     Indication: TYPE 2 DIABETES MELLITUS
     Dosage: 50 U, QD
     Route: 058
     Dates: start: 20160513, end: 20170503
  4. NOVOLOG [Suspect]
     Active Substance: INSULIN ASPART
     Indication: TYPE 2 DIABETES MELLITUS
     Dosage: 10 U, UNK
     Route: 058
     Dates: start: 20160513
  5. METOPROLOL. [Concomitant]
     Active Substance: METOPROLOL
     Indication: TYPE 2 DIABETES MELLITUS
     Route: 048

REACTIONS (3)
  - Hypoglycaemic unconsciousness [Recovered/Resolved]
  - Blood glucose increased [Recovered/Resolved]
  - Dose calculation error [Recovered/Resolved]

NARRATIVE: CASE EVENT DATE: 20170518
